FAERS Safety Report 4780989-1 (Version None)
Quarter: 2005Q3

REPORT INFORMATION
  Report Type: 
  Country: None (occurrence: None)
  Receive Date: 20050928
  Receipt Date: 20050916
  Transmission Date: 20060218
  Serious: Yes (Disabling)
  Sender: FDA-Public Use
  Company Number: DE-BOEHRINGER INGELHEIM PHARMACEUTICALS, INC.-2005-DE-03834BY

PATIENT
  Sex: Male

DRUGS (5)
  1. KINZALMONO [Suspect]
     Indication: HYPERTENSION
     Route: 048
     Dates: start: 20040903
  2. KINZALKOMB [Suspect]
     Indication: HYPERTENSION
     Route: 048
     Dates: start: 20040908, end: 20050428
  3. AMLODIPINE [Concomitant]
     Route: 048
     Dates: start: 20040707, end: 20041002
  4. CAPTOPRIL [Concomitant]
     Route: 048
     Dates: end: 20040903
  5. ATACAND [Concomitant]
     Route: 048

REACTIONS (3)
  - ABNORMAL BEHAVIOUR [None]
  - AGGRESSION [None]
  - ANHEDONIA [None]
